FAERS Safety Report 12059370 (Version 1)
Quarter: 2016Q1

REPORT INFORMATION
  Report Type: Spontaneous
  Country: US (occurrence: US)
  Receive Date: 20160210
  Receipt Date: 20160210
  Transmission Date: 20160526
  Serious: No
  Sender: FDA-Public Use
  Company Number: US-BAYER-2016-019248

PATIENT
  Age: 76 Year
  Sex: Female
  Weight: 71.2 kg

DRUGS (1)
  1. MIRALAX [Suspect]
     Active Substance: POLYETHYLENE GLYCOL 3350
     Indication: CONSTIPATION
     Dosage: 2 TEASPOON, QD
     Route: 048
     Dates: start: 201510

REACTIONS (4)
  - Surgery [Recovered/Resolved]
  - Product use issue [None]
  - Drug ineffective [None]
  - Muscle spasms [Not Recovered/Not Resolved]

NARRATIVE: CASE EVENT DATE: 201510
